FAERS Safety Report 9164424 (Version 2)
Quarter: 2013Q2

REPORT INFORMATION
  Report Type: Spontaneous
  Country: FR (occurrence: FR)
  Receive Date: 20130315
  Receipt Date: 20130422
  Transmission Date: 20140414
  Serious: Yes (Hospitalization)
  Sender: FDA-Public Use
  Company Number: FR-JNJFOC-20130304570

PATIENT
  Age: 60 Year
  Sex: Female

DRUGS (11)
  1. XARELTO [Suspect]
     Indication: CEREBROVASCULAR ACCIDENT PROPHYLAXIS
     Route: 065
     Dates: start: 20121118, end: 20121216
  2. XARELTO [Suspect]
     Indication: ATRIAL FIBRILLATION
     Route: 065
     Dates: start: 20121118, end: 20121216
  3. LEVEMIR [Concomitant]
     Route: 065
  4. APROVEL [Concomitant]
     Route: 065
  5. CARDENSIEL [Concomitant]
     Route: 065
  6. JANUVIA [Concomitant]
     Route: 065
  7. VENTOLINE INHALER [Concomitant]
     Route: 065
  8. DIAMICRON [Concomitant]
     Route: 065
  9. FLUDEX [Concomitant]
     Route: 065
  10. GLUCOPHAGE [Concomitant]
     Route: 065
  11. AMLOR [Concomitant]
     Route: 065

REACTIONS (2)
  - Vasculitis necrotising [Recovered/Resolved]
  - Purpura [Recovered/Resolved]
